FAERS Safety Report 18381346 (Version 1)
Quarter: 2020Q4

REPORT INFORMATION
  Report Type: Spontaneous
  Country: US (occurrence: US)
  Receive Date: 20201013
  Receipt Date: 20201013
  Transmission Date: 20210114
  Serious: No
  Sender: FDA-Public Use
  Company Number: None

PATIENT
  Age: 74 Year
  Sex: Female
  Weight: 64.35 kg

DRUGS (3)
  1. AMLODIPINE [Concomitant]
     Active Substance: AMLODIPINE BESYLATE
  2. SUTENT [Suspect]
     Active Substance: SUNITINIB MALATE
     Indication: HEPATIC CANCER
     Route: 048
     Dates: start: 20200921, end: 20201009
  3. LEVOTHYROCINE [Concomitant]
     Active Substance: LEVOTHYROXINE

REACTIONS (8)
  - Back pain [None]
  - Nausea [None]
  - Therapy interrupted [None]
  - Cough [None]
  - Flatulence [None]
  - Bone pain [None]
  - Yellow skin [None]
  - Diarrhoea [None]

NARRATIVE: CASE EVENT DATE: 20201013
